FAERS Safety Report 9296994 (Version 3)
Quarter: 2013Q3

REPORT INFORMATION
  Report Type: Spontaneous
  Country: US (occurrence: US)
  Receive Date: 20130518
  Receipt Date: 20130801
  Transmission Date: 20140515
  Serious: Yes (Hospitalization, Other)
  Sender: FDA-Public Use
  Company Number: US-BAXTER-2013BAX017542

PATIENT
  Age: 54 Year
  Sex: Male

DRUGS (4)
  1. DIANEAL LOW CALCIUM [Suspect]
     Indication: PERITONEAL DIALYSIS
     Route: 033
     Dates: start: 20130408
  2. DIANEAL LOW CALCIUM [Suspect]
     Route: 033
  3. DIANEAL LOW CALCIUM [Suspect]
     Indication: PERITONEAL DIALYSIS
     Route: 033
     Dates: start: 20130408
  4. DIANEAL LOW CALCIUM [Suspect]
     Route: 033

REACTIONS (5)
  - Pituitary tumour benign [Recovering/Resolving]
  - Pituitary infarction [Unknown]
  - Blindness [Not Recovered/Not Resolved]
  - Encephalitis [Recovered/Resolved]
  - Post procedural complication [Recovered/Resolved]
